FAERS Safety Report 8111756-9 (Version None)
Quarter: 2012Q1

REPORT INFORMATION
  Report Type: 
  Country: None (occurrence: None)
  Receive Date: 20120203
  Receipt Date: 20120131
  Transmission Date: 20120608
  Serious: Yes (Hospitalization)
  Sender: FDA-Public Use
  Company Number: IL-SANOFI-AVENTIS-2012SA006924

PATIENT
  Age: 70 Year
  Sex: Female

DRUGS (2)
  1. ARAVA [Suspect]
     Dosage: FOR 3 WEEKS
     Route: 065
  2. METHOTREXATE [Concomitant]
     Dosage: WAS TREATED FOR A WEEK WHEN ADDITIONAL TREATMENT WITH LEFLUNOMIDE WAS INITIATED.

REACTIONS (2)
  - PANCYTOPENIA [None]
  - INTESTINAL PERFORATION [None]
